FAERS Safety Report 24989136 (Version 3)
Quarter: 2025Q2

REPORT INFORMATION
  Report Type: Spontaneous
  Country: US (occurrence: US)
  Receive Date: 20250220
  Receipt Date: 20250403
  Transmission Date: 20250717
  Serious: Yes (Other)
  Sender: TEVA
  Company Number: US-TEVA-VS-3298222

PATIENT
  Age: 68 Year
  Sex: Male

DRUGS (4)
  1. DEXAMETHASONE [Suspect]
     Active Substance: DEXAMETHASONE
     Indication: Immune effector cell-associated neurotoxicity syndrome
     Route: 065
  2. NIVOLUMAB [Interacting]
     Active Substance: NIVOLUMAB
     Indication: Squamous cell carcinoma
     Route: 065
  3. TECLISTAMAB [Interacting]
     Active Substance: TECLISTAMAB
     Indication: Plasma cell myeloma refractory
     Route: 065
  4. SULFAMETHOXAZOLE\TRIMETHOPRIM [Suspect]
     Active Substance: SULFAMETHOXAZOLE\TRIMETHOPRIM
     Indication: Product used for unknown indication
     Route: 065

REACTIONS (6)
  - Drug interaction [Unknown]
  - Acute kidney injury [Recovering/Resolving]
  - Immune effector cell-associated neurotoxicity syndrome [Unknown]
  - Tubulointerstitial nephritis [Recovering/Resolving]
  - Drug ineffective [Unknown]
  - Cytokine release syndrome [Unknown]
